FAERS Safety Report 7014657-2 (Version None)
Quarter: 2010Q3

REPORT INFORMATION
  Report Type: 
  Country: None (occurrence: None)
  Receive Date: 20100927
  Receipt Date: 20100917
  Transmission Date: 20110219
  Serious: Yes (Other)
  Sender: FDA-Public Use
  Company Number: GR-BAXTER-2010BH023286

PATIENT
  Age: 49 Year
  Sex: Female
  Weight: 42 kg

DRUGS (10)
  1. CYCLOPHOSPHAMIDE [Suspect]
     Indication: BREAST CANCER
     Route: 042
     Dates: start: 20070620, end: 20070718
  2. TAXOL [Suspect]
     Indication: BREAST CANCER
     Route: 042
     Dates: start: 20070509, end: 20070606
  3. METHOTREXATE [Suspect]
     Indication: BREAST CANCER
     Route: 042
     Dates: start: 20070620, end: 20070718
  4. FLUOROURACIL [Suspect]
     Indication: BREAST CANCER
     Route: 042
     Dates: start: 20070620, end: 20070718
  5. EMEND [Concomitant]
     Indication: PREMEDICATION
     Route: 048
     Dates: start: 20070328, end: 20070718
  6. ZOFRON [Concomitant]
     Indication: PREMEDICATION
     Route: 048
     Dates: start: 20070329, end: 20070718
  7. EPOETIN ALFA [Concomitant]
     Indication: ANAEMIA
     Route: 058
     Dates: start: 20070509, end: 20070704
  8. VENLAFAXINE HYDROCHLORIDE [Concomitant]
     Indication: DEPRESSION
     Route: 048
     Dates: start: 20070509, end: 20070718
  9. FENISTIL [Concomitant]
     Indication: PREMEDICATION
     Route: 048
     Dates: start: 20070523, end: 20070523
  10. DEXAMETHASONE SODIUM PHOSPHATE [Concomitant]
     Indication: PREMEDICATION
     Route: 048
     Dates: start: 20070606, end: 20070718

REACTIONS (1)
  - NEUROPATHY PERIPHERAL [None]
